FAERS Safety Report 20540668 (Version 2)
Quarter: 2022Q4

REPORT INFORMATION
  Report Type: Spontaneous
  Country: FR (occurrence: FR)
  Receive Date: 20220302
  Receipt Date: 20221026
  Transmission Date: 20230112
  Serious: Yes (Death, Life-Threatening)
  Sender: FDA-Public Use
  Company Number: None

PATIENT
  Age: 73 Year
  Sex: Female
  Weight: 36.6 kg

DRUGS (30)
  1. CYTARABINE [Suspect]
     Active Substance: CYTARABINE
     Indication: Central nervous system lymphoma
     Dosage: 8 G (CONSOLIDATION C1D1, 4G AT D1 AND D2)
     Route: 042
     Dates: start: 20220117, end: 20220118
  2. RITUXIMAB [Suspect]
     Active Substance: RITUXIMAB
     Indication: Central nervous system lymphoma
     Dosage: 375 MG/M2 (C1D1, 596.25MG TOTAL DOSE)
     Route: 042
     Dates: start: 20210923, end: 20210923
  3. RITUXIMAB [Suspect]
     Active Substance: RITUXIMAB
     Dosage: 375 MG/M2 (C2D1)
     Route: 042
     Dates: start: 20211025, end: 20211025
  4. RITUXIMAB [Suspect]
     Active Substance: RITUXIMAB
     Dosage: 375 MG/M2 (C3D1, 573.75MG)
     Route: 042
     Dates: start: 20211122, end: 20211122
  5. RITUXIMAB [Suspect]
     Active Substance: RITUXIMAB
     Dosage: 375 MG/M2 (C4D1, 573.75MG)
     Route: 042
     Dates: start: 20211220, end: 20211220
  6. RITUXIMAB [Suspect]
     Active Substance: RITUXIMAB
     Dosage: 375 MG/M2 (CONSOLIDATION C1D1,  521,5 MG)
     Route: 042
     Dates: start: 20220117, end: 20220117
  7. VINCRISTINE SULFATE [Suspect]
     Active Substance: VINCRISTINE SULFATE
     Indication: Central nervous system lymphoma
     Dosage: 1.4 MG/M2 (C1D1, TOTAL DOSE OF 2 MG)
     Route: 042
     Dates: start: 20210923, end: 20210923
  8. VINCRISTINE SULFATE [Suspect]
     Active Substance: VINCRISTINE SULFATE
     Dosage: 1.4 MG/M2 (C1D15,2 MG TOTAL DOSE AT D15)
     Route: 042
     Dates: start: 20211011, end: 20211011
  9. VINCRISTINE SULFATE [Suspect]
     Active Substance: VINCRISTINE SULFATE
     Dosage: 1.4 MG/M2 (C2D1, 2 MG  TOTAL DOSE)
     Route: 042
     Dates: start: 20211025, end: 20211025
  10. VINCRISTINE SULFATE [Suspect]
     Active Substance: VINCRISTINE SULFATE
     Dosage: 1.4 MG/M2 (C2D15,2 MG AT D15)
     Route: 042
     Dates: start: 20211109, end: 20211109
  11. VINCRISTINE SULFATE [Suspect]
     Active Substance: VINCRISTINE SULFATE
     Dosage: 1.4 MG/M2 (D2, 2 MG  TOTAL DOSE)
     Route: 042
     Dates: start: 20211123, end: 20211123
  12. VINCRISTINE SULFATE [Suspect]
     Active Substance: VINCRISTINE SULFATE
     Dosage: 1.4 MG/M2 (C3D15, 2.1 MG AT D15)
     Route: 042
     Dates: start: 20211207, end: 20211207
  13. VINCRISTINE SULFATE [Suspect]
     Active Substance: VINCRISTINE SULFATE
     Dosage: 1.4 MG/M2 (D2,  2.1 MG OF TOTAL DOSE)
     Route: 042
     Dates: start: 20211221, end: 20211221
  14. VINCRISTINE SULFATE [Suspect]
     Active Substance: VINCRISTINE SULFATE
     Dosage: 1.4 MG/M2 (C4D15, 2 MG)
     Route: 042
     Dates: start: 20220104, end: 20220104
  15. PROCARBAZINE [Suspect]
     Active Substance: PROCARBAZINE
     Indication: Central nervous system lymphoma
     Dosage: 100 MG/M2 (159MG FROM D1 TO D7)
     Route: 042
     Dates: start: 20210923, end: 20210929
  16. PROCARBAZINE [Suspect]
     Active Substance: PROCARBAZINE
     Dosage: 100 MG/M2 PER OS (D1 TO D7)
     Route: 042
     Dates: start: 20211025, end: 20211031
  17. PROCARBAZINE [Suspect]
     Active Substance: PROCARBAZINE
     Dosage: 100 MG/M2 PER OS (150MG)
     Route: 042
     Dates: start: 20211122, end: 20211124
  18. PROCARBAZINE [Suspect]
     Active Substance: PROCARBAZINE
     Dosage: 100 MG/M2 (150 MG FROM D1 TO D7)
     Route: 042
     Dates: start: 20211220, end: 20211226
  19. METHOTREXATE SODIUM [Suspect]
     Active Substance: METHOTREXATE SODIUM
     Indication: Central nervous system lymphoma
     Dosage: 3500 MG/M2  (C1D1, TOTAL DOSE OF 5565 MG)
     Route: 042
     Dates: start: 20210923, end: 20210923
  20. METHOTREXATE SODIUM [Suspect]
     Active Substance: METHOTREXATE SODIUM
     Dosage: 3500MG/M2  (C1D15, 5530 MG  TOTAL DOSE AT D15)
     Route: 042
     Dates: start: 20211011, end: 20211011
  21. METHOTREXATE SODIUM [Suspect]
     Active Substance: METHOTREXATE SODIUM
     Dosage: 3500 MG/M2  (C2D1)
     Route: 042
     Dates: start: 20211025, end: 20211025
  22. METHOTREXATE SODIUM [Suspect]
     Active Substance: METHOTREXATE SODIUM
     Dosage: 3500 MG/M2  (C2D15, 5530 MG)
     Route: 042
     Dates: start: 20211109, end: 20211109
  23. METHOTREXATE SODIUM [Suspect]
     Active Substance: METHOTREXATE SODIUM
     Dosage: 3500 MG/M2  (D2, 5350MG)
     Route: 042
     Dates: start: 20211123, end: 20211123
  24. METHOTREXATE SODIUM [Suspect]
     Active Substance: METHOTREXATE SODIUM
     Dosage: 3500 MG/M2  (5250 MG, AT D15)
     Route: 042
     Dates: start: 20211207, end: 20211207
  25. METHOTREXATE SODIUM [Suspect]
     Active Substance: METHOTREXATE SODIUM
     Dosage: 3500 MG/M2  (D2, 5355MG)
     Route: 042
     Dates: start: 20211221, end: 20211221
  26. METHOTREXATE SODIUM [Suspect]
     Active Substance: METHOTREXATE SODIUM
     Dosage: 3500 MG/M2  (5.355 G, AT D15)
     Route: 042
     Dates: start: 20220104, end: 20220104
  27. METHYLPREDNISOLONE [Concomitant]
     Active Substance: METHYLPREDNISOLONE
     Dosage: 20 MG (D1 TO D5)
     Dates: start: 20210923, end: 20210927
  28. METHYLPREDNISOLONE [Concomitant]
     Active Substance: METHYLPREDNISOLONE
     Dosage: 60 MG, DAILY FROM D15 TO D18
     Dates: start: 20211011, end: 20211014
  29. METHYLPREDNISOLONE [Concomitant]
     Active Substance: METHYLPREDNISOLONE
     Dosage: 60 MG, DAILY FROM D15 TO D18
     Dates: start: 20211109, end: 20211112
  30. METHYLPREDNISOLONE [Concomitant]
     Active Substance: METHYLPREDNISOLONE
     Dosage: 60 MG, DAILY FROM D15 TO D18
     Dates: start: 20211207, end: 20211210

REACTIONS (2)
  - Neurotoxicity [Fatal]
  - Neutropenia [Unknown]

NARRATIVE: CASE EVENT DATE: 20210101
